FAERS Safety Report 10657179 (Version 1)
Quarter: 2014Q4

REPORT INFORMATION
  Report Type: Spontaneous
  Country: US (occurrence: None)
  Receive Date: 20141215
  Receipt Date: 20141215
  Transmission Date: 20150529
  Serious: Yes (Other)
  Sender: FDA-Public Use
  Company Number: JPI-P-027584

PATIENT
  Age: 37 Year
  Sex: Female

DRUGS (1)
  1. XYREM [Suspect]
     Active Substance: SODIUM OXYBATE
     Indication: HYPERSOMNIA
     Route: 048
     Dates: start: 2009, end: 2009

REACTIONS (3)
  - Pre-eclampsia [None]
  - Exposure during pregnancy [None]
  - Off label use [None]

NARRATIVE: CASE EVENT DATE: 2013
